FAERS Safety Report 12174756 (Version 2)
Quarter: 2017Q3

REPORT INFORMATION
  Report Type: Report from Study
  Country: US (occurrence: US)
  Receive Date: 20160314
  Receipt Date: 20170906
  Transmission Date: 20171127
  Serious: Yes (Death, Other)
  Sender: FDA-Public Use
  Company Number: US-ROCHE-692560

PATIENT

DRUGS (3)
  1. OXALIPLATIN. [Suspect]
     Active Substance: OXALIPLATIN
     Indication: GASTROINTESTINAL CARCINOMA
     Dosage: ON DAY 1, FOR UP TO EIGHT CYCLES
     Route: 042
  2. CAPECITABINE. [Suspect]
     Active Substance: CAPECITABINE
     Indication: GASTROINTESTINAL CARCINOMA
     Dosage: FROM DAY 1 TO 14
     Route: 048
  3. BLINDED LAPATINIB [Suspect]
     Active Substance: LAPATINIB
     Indication: GASTROINTESTINAL CARCINOMA
     Dosage: DOSE BLINDED
     Route: 048

REACTIONS (33)
  - Diarrhoea [Fatal]
  - Anaemia [Fatal]
  - Impaired gastric emptying [Fatal]
  - Abdominal infection [Fatal]
  - Asthenia [Unknown]
  - Dehydration [Unknown]
  - Vomiting [Fatal]
  - Pneumonia aspiration [Fatal]
  - Abdominal pain [Fatal]
  - Obstruction gastric [Fatal]
  - Sepsis [Fatal]
  - Large intestine perforation [Fatal]
  - Sudden death [Fatal]
  - Nausea [Unknown]
  - Fatigue [Unknown]
  - Multiple organ dysfunction syndrome [Fatal]
  - Palmar-plantar erythrodysaesthesia syndrome [Unknown]
  - Decreased appetite [Unknown]
  - Ascites [Unknown]
  - Death [Fatal]
  - Cerebrovascular accident [Fatal]
  - Acute myocardial infarction [Fatal]
  - Drowning [Fatal]
  - Haematemesis [Fatal]
  - Renal failure [Unknown]
  - Neutropenia [Unknown]
  - Epilepsy [Fatal]
  - Cardio-respiratory arrest [Fatal]
  - Coma [Fatal]
  - Pulmonary embolism [Unknown]
  - Neuropathy peripheral [Unknown]
  - Cellulitis [Fatal]
  - Enterocolitis infectious [Fatal]
